FAERS Safety Report 17006108 (Version 3)
Quarter: 2019Q4

REPORT INFORMATION
  Report Type: Spontaneous
  Country: US (occurrence: US)
  Receive Date: 20191107
  Receipt Date: 20191115
  Transmission Date: 20200122
  Serious: Yes (Other)
  Sender: FDA-Public Use
  Company Number: US-SA-2019SA307136

PATIENT
  Age: 73 Year
  Sex: Male

DRUGS (2)
  1. NASACORT ALLERGY 24HR [Suspect]
     Active Substance: TRIAMCINOLONE ACETONIDE
     Indication: NASAL CONGESTION
  2. NASACORT ALLERGY 24HR [Suspect]
     Active Substance: TRIAMCINOLONE ACETONIDE
     Indication: MIGRAINE
     Dosage: 1 DF, QD
     Route: 045

REACTIONS (5)
  - Loss of consciousness [Unknown]
  - Hypersensitivity [Unknown]
  - Migraine [Unknown]
  - Therapeutic product effect incomplete [Unknown]
  - Drug resistance [Unknown]
